FAERS Safety Report 4464726-6 (Version None)
Quarter: 2004Q3

REPORT INFORMATION
  Report Type: 
  Country: None (occurrence: None)
  Receive Date: 20040929
  Receipt Date: 20040929
  Transmission Date: 20050211
  Serious: Yes (Hospitalization)
  Sender: FDA-Public Use
  Company Number: None

PATIENT
  Sex: Male

DRUGS (12)
  1. TAMSULOSIN  0.4 MG [Suspect]
     Dosage: 0.4 MG HS ORAL
     Route: 048
  2. AMIODARONE [Concomitant]
  3. WARFARIN SODIUM [Concomitant]
  4. FUROSEMIDE [Concomitant]
  5. DORZOLAMIDE/TIMOLOL [Concomitant]
  6. ALENDRONATE SODIUM [Concomitant]
  7. TRAVOPROST [Concomitant]
  8. SIMVASTATIN [Concomitant]
  9. CYANOCOBALAMIN [Concomitant]
  10. APAP TAB [Concomitant]
  11. CALCIUM GLUCONATE [Concomitant]
  12. FERROUS SULFATE TAB [Concomitant]

REACTIONS (1)
  - DIZZINESS [None]
